FAERS Safety Report 6167430-1 (Version None)
Quarter: 2009Q2

REPORT INFORMATION
  Report Type: 
  Country: None (occurrence: None)
  Receive Date: 20090424
  Receipt Date: 20090417
  Transmission Date: 20091009
  Serious: Yes (Other)
  Sender: FDA-Public Use
  Company Number: PHEH2009US03923

PATIENT
  Sex: Male

DRUGS (8)
  1. AREDIA [Suspect]
     Indication: PROSTATE CANCER METASTATIC
     Dosage: 30 MG, QMO
     Route: 042
     Dates: start: 20081017, end: 20090320
  2. OXYCONTIN [Concomitant]
  3. OXYCODONE HCL [Concomitant]
  4. DIGOXIN [Concomitant]
     Dosage: 0.25 MG, QD
  5. LEVOTHYROXINE SODIUM [Concomitant]
     Dosage: 0.05 MG, QD
  6. LUPRON [Concomitant]
     Dosage: 30 MG, QMO
  7. ATENOLOL [Concomitant]
     Dosage: 25 MG, QD
  8. MIRALAX [Concomitant]

REACTIONS (1)
  - MENTAL STATUS CHANGES [None]
